FAERS Safety Report 7014365-8 (Version None)
Quarter: 2010Q3

REPORT INFORMATION
  Report Type: 
  Country: None (occurrence: None)
  Receive Date: 20100927
  Receipt Date: 20100316
  Transmission Date: 20110219
  Serious: No
  Sender: FDA-Public Use
  Company Number: US-MYLANLABS-2010S1003957

PATIENT
  Sex: Male

DRUGS (5)
  1. CARBIDOPA AND LEVODOPA ORALLY DISINTEGRATING TABLETS [Suspect]
     Indication: PARKINSON'S DISEASE
     Route: 048
     Dates: start: 20100201
  2. CARBIDOPA AND LEVODOPA ORALLY DISINTEGRATING TABLETS [Suspect]
     Route: 048
     Dates: start: 20100201
  3. DITROPAN XL [Concomitant]
     Indication: BLADDER DISORDER
     Route: 048
  4. AMICAR [Concomitant]
     Indication: HAEMORRHAGE
     Route: 048
  5. LISINOPRIL [Concomitant]
     Indication: HYPERTENSION
     Route: 048

REACTIONS (2)
  - DRUG INEFFECTIVE [None]
  - PARKINSON'S DISEASE [None]
